FAERS Safety Report 21129894 (Version 1)
Quarter: 2022Q3

REPORT INFORMATION
  Report Type: Spontaneous
  Country: FR (occurrence: FR)
  Receive Date: 20220726
  Receipt Date: 20220726
  Transmission Date: 20221027
  Serious: Yes (Hospitalization)
  Sender: FDA-Public Use
  Company Number: None

PATIENT
  Age: 72 Year
  Sex: Female
  Weight: 40 kg

DRUGS (4)
  1. FLUDARABINE PHOSPHATE [Suspect]
     Active Substance: FLUDARABINE PHOSPHATE
     Indication: Bone marrow conditioning regimen
     Dosage: FLUDARABINE (PHOSPHATE DE) , UNIT DOSE :39 MG  , FREQUENCY TIME : 1 DAY  , DURATION : 2 DAY
     Dates: start: 20211022, end: 20211024
  2. CYCLOPHOSPHAMIDE [Suspect]
     Active Substance: CYCLOPHOSPHAMIDE
     Indication: Bone marrow conditioning regimen
     Dosage: UNIT DOSE :650 MG  , FREQUENCY TIME :1 DAY  , DURATION : 2 DAY
     Dates: start: 20211022, end: 20211024
  3. MESNA [Suspect]
     Active Substance: MESNA
     Indication: Chemotherapy side effect prophylaxis
     Dosage: UNIT DOSE : 260 MG , FREQUENCY TIME : 1 DAYS , DURATION : 2 DAYS
     Dates: start: 20211022, end: 20211024
  4. YESCARTA [Suspect]
     Active Substance: AXICABTAGENE CILOLEUCEL
     Indication: Diffuse large B-cell lymphoma
     Dosage: DISPERSION FOR INFUSION , UNIT DOSE :1 DF   , FREQUENCY TIME : 1 DAYS
     Dates: start: 20211027, end: 20211027

REACTIONS (1)
  - Cytokine release syndrome [Recovered/Resolved]

NARRATIVE: CASE EVENT DATE: 20211028
